FAERS Safety Report 9120032 (Version 1)
Quarter: 2013Q1

REPORT INFORMATION
  Report Type: Spontaneous
  Country: US (occurrence: US)
  Receive Date: 20130207
  Receipt Date: 20130207
  Transmission Date: 20140127
  Serious: Yes (Hospitalization, Other)
  Sender: FDA-Public Use
  Company Number: PHEH2013US002804

PATIENT
  Sex: Female

DRUGS (20)
  1. FEMARA [Suspect]
     Indication: BREAST CANCER
     Dosage: 2.5 MG, QD
  2. ZOMETA [Suspect]
     Dosage: UNK UKN, UNK
  3. ARIMIDEX [Suspect]
     Dosage: UNK UKN, UNK
  4. LEXAPRO [Suspect]
     Dosage: UNK UKN, UNK
  5. TAMOXIFEN [Concomitant]
     Dosage: UNK UKN, UNK
  6. TOREMIFENE [Concomitant]
     Dosage: UNK UKN, UNK
  7. WELLBUTRIN XR [Concomitant]
     Dosage: UNK UKN, UNK
  8. TAXOL [Concomitant]
     Dosage: UNK UKN, UNK
  9. GEMCITABINE [Concomitant]
     Dosage: UNK UKN, UNK
  10. NAVELBINE [Concomitant]
     Dosage: UNK UKN, UNK
  11. VITAMIN D3 [Concomitant]
     Dosage: UNK UKN, UNK
  12. COZAAR [Concomitant]
     Dosage: UNK UKN, UNK
  13. METFORMIN [Concomitant]
     Dosage: UNK UKN, UNK
  14. OMEPRAZOLE [Concomitant]
     Dosage: UNK UKN, UNK
  15. SENNA [Concomitant]
     Dosage: UNK UKN, UNK
  16. ATENOLOL [Concomitant]
     Dosage: UNK UKN, UNK
  17. ZOFRAN [Concomitant]
     Dosage: UNK UKN, UNK
  18. NAPROSYN [Concomitant]
     Dosage: UNK UKN, UNK
  19. COMPAZINE [Concomitant]
     Dosage: UNK UKN, UNK
  20. TRAZODONE [Concomitant]
     Dosage: UNK UKN, UNK

REACTIONS (15)
  - Suicide attempt [Unknown]
  - Lymphoedema [Unknown]
  - Tardive dyskinesia [Unknown]
  - Tooth fracture [Unknown]
  - Renal impairment [Unknown]
  - Depression [Unknown]
  - Breast cancer [Unknown]
  - Malignant neoplasm progression [Unknown]
  - Metastases to bone [Unknown]
  - Nausea [Unknown]
  - Headache [Unknown]
  - Asthenia [Unknown]
  - Fatigue [Unknown]
  - Pallor [Unknown]
  - Arthralgia [Unknown]
